FAERS Safety Report 22055045 (Version 1)
Quarter: 2023Q1

REPORT INFORMATION
  Report Type: Spontaneous
  Country: CA (occurrence: CA)
  Receive Date: 20230302
  Receipt Date: 20230302
  Transmission Date: 20230417
  Serious: Yes (Other)
  Sender: FDA-Public Use
  Company Number: CA-TAKEDA-2023TUS019732

PATIENT
  Age: 30 Year
  Sex: Female

DRUGS (26)
  1. MESALAMINE [Suspect]
     Active Substance: MESALAMINE
     Indication: Product used for unknown indication
     Dosage: UNK
     Route: 065
  2. INFLECTRA [Suspect]
     Active Substance: INFLIXIMAB-DYYB
     Indication: Colitis ulcerative
     Dosage: 5 MILLIGRAM/KILOGRAM, 1/WEEK
     Route: 042
     Dates: start: 20221220
  3. INFLECTRA [Suspect]
     Active Substance: INFLIXIMAB-DYYB
     Dosage: 5 MILLIGRAM/KILOGRAM, Q2WEEKS
     Route: 042
     Dates: start: 20221220
  4. INFLECTRA [Suspect]
     Active Substance: INFLIXIMAB-DYYB
     Dosage: 5 MILLIGRAM/KILOGRAM, Q6WEEKS
     Route: 042
     Dates: start: 20221220
  5. INFLECTRA [Suspect]
     Active Substance: INFLIXIMAB-DYYB
     Dosage: 5 MILLIGRAM/KILOGRAM, Q8WEEKS
     Route: 042
     Dates: start: 20221220
  6. INFLECTRA [Suspect]
     Active Substance: INFLIXIMAB-DYYB
     Dosage: 5 MILLIGRAM/KILOGRAM, 1/WEEK
     Route: 042
     Dates: start: 20221220
  7. INFLECTRA [Suspect]
     Active Substance: INFLIXIMAB-DYYB
     Dosage: 5 MILLIGRAM/KILOGRAM, Q2WEEKS
     Route: 042
     Dates: start: 20221220
  8. INFLECTRA [Suspect]
     Active Substance: INFLIXIMAB-DYYB
     Dosage: 5 MILLIGRAM/KILOGRAM, Q6WEEKS
     Route: 042
     Dates: start: 20221220
  9. INFLECTRA [Suspect]
     Active Substance: INFLIXIMAB-DYYB
     Dosage: 5 MILLIGRAM/KILOGRAM, Q8WEEKS
     Route: 042
     Dates: start: 20221220
  10. INFLECTRA [Suspect]
     Active Substance: INFLIXIMAB-DYYB
     Dosage: 5 MILLIGRAM/KILOGRAM, 1/WEEK
     Route: 042
     Dates: start: 20230104
  11. INFLECTRA [Suspect]
     Active Substance: INFLIXIMAB-DYYB
     Dosage: 5 MILLIGRAM/KILOGRAM, Q2WEEKS
     Route: 042
     Dates: start: 20230104
  12. INFLECTRA [Suspect]
     Active Substance: INFLIXIMAB-DYYB
     Dosage: 5 MILLIGRAM/KILOGRAM, Q6WEEKS
     Route: 042
     Dates: start: 20230104
  13. INFLECTRA [Suspect]
     Active Substance: INFLIXIMAB-DYYB
     Dosage: 5 MILLIGRAM/KILOGRAM, Q8WEEKS
     Route: 042
     Dates: start: 20230104
  14. ADMELOG [Concomitant]
     Active Substance: INSULIN LISPRO
     Indication: Product used for unknown indication
     Dosage: UNK
     Route: 065
  15. CALCIUM\VITAMIN D [Concomitant]
     Active Substance: CALCIUM\VITAMIN D
     Indication: Product used for unknown indication
     Dosage: UNK
     Route: 065
  16. CITALOPRAM [Concomitant]
     Active Substance: CITALOPRAM HYDROBROMIDE
     Indication: Product used for unknown indication
     Dosage: UNK
     Route: 065
  17. Cortiment [Concomitant]
     Indication: Product used for unknown indication
     Dosage: UNK
     Route: 065
  18. DOXYLAMINE [Concomitant]
     Active Substance: DOXYLAMINE
     Indication: Product used for unknown indication
     Dosage: UNK
     Route: 065
  19. ENTOCORT [Concomitant]
     Active Substance: BUDESONIDE
     Indication: Product used for unknown indication
     Dosage: UNK
     Route: 065
  20. FERROUS SULFATE [Concomitant]
     Active Substance: FERROUS SULFATE
     Dosage: UNK
     Route: 065
  21. HUMULIN N [Concomitant]
     Active Substance: INSULIN HUMAN
     Indication: Product used for unknown indication
     Dosage: UNK
     Route: 065
  22. PREDNISONE [Concomitant]
     Active Substance: PREDNISONE
     Indication: Product used for unknown indication
     Dosage: UNK
     Route: 065
  23. PANTOPRAZOLE SODIUM [Concomitant]
     Active Substance: PANTOPRAZOLE SODIUM
     Indication: Product used for unknown indication
     Dosage: UNK
  24. PROCTOL [Concomitant]
     Indication: Product used for unknown indication
     Dosage: UNK
     Route: 065
  25. Salofalk [Concomitant]
     Indication: Product used for unknown indication
     Dosage: UNK
     Route: 065
  26. TYLENOL [Concomitant]
     Active Substance: ACETAMINOPHEN
     Indication: Product used for unknown indication
     Dosage: UNK
     Route: 065

REACTIONS (9)
  - Sepsis [Unknown]
  - Maternal exposure during pregnancy [Unknown]
  - Retained placenta or membranes [Unknown]
  - Chills [Not Recovered/Not Resolved]
  - Body temperature abnormal [Not Recovered/Not Resolved]
  - Urinary tract infection [Unknown]
  - Headache [Recovered/Resolved]
  - Nausea [Unknown]
  - Drug intolerance [Unknown]

NARRATIVE: CASE EVENT DATE: 20221220
